FAERS Safety Report 10046829 (Version 1)
Quarter: 2014Q1

REPORT INFORMATION
  Report Type: Spontaneous
  Country: US (occurrence: None)
  Receive Date: 20140328
  Receipt Date: 20140328
  Transmission Date: 20141002
  Serious: Yes (Other)
  Sender: FDA-Public Use
  Company Number: None

PATIENT
  Age: 39 Year
  Sex: Female
  Weight: 56.7 kg

DRUGS (1)
  1. DYSPORT [Suspect]
     Indication: SKIN WRINKLING
     Dosage: 20 UNITES 3-4 MONTHS INTO THE MUSCLE
     Route: 030
     Dates: start: 20140227

REACTIONS (13)
  - Headache [None]
  - Feeling abnormal [None]
  - Influenza [None]
  - Vertigo [None]
  - Malaise [None]
  - Dyspnoea [None]
  - Oropharyngeal pain [None]
  - Anxiety [None]
  - Palpitations [None]
  - Disturbance in attention [None]
  - Memory impairment [None]
  - Speech disorder [None]
  - Feeling abnormal [None]
